FAERS Safety Report 8054981-8 (Version None)
Quarter: 2012Q1

REPORT INFORMATION
  Report Type: 
  Country: None (occurrence: None)
  Receive Date: 20120119
  Receipt Date: 20120112
  Transmission Date: 20120608
  Serious: Yes (Other)
  Sender: FDA-Public Use
  Company Number: US-PFIZER INC-2012010493

PATIENT
  Age: 49 Year
  Sex: Female

DRUGS (3)
  1. CYMBALTA [Suspect]
     Indication: FIBROMYALGIA
     Dosage: UNK
  2. XANAX [Suspect]
     Indication: FIBROMYALGIA
     Dosage: UNK
  3. LYRICA [Suspect]
     Indication: FIBROMYALGIA
     Dosage: UNK

REACTIONS (6)
  - MYALGIA [None]
  - TENDON PAIN [None]
  - LIGAMENT PAIN [None]
  - INFLUENZA LIKE ILLNESS [None]
  - PAIN [None]
  - FATIGUE [None]
